FAERS Safety Report 6779400-0 (Version None)
Quarter: 2010Q2

REPORT INFORMATION
  Report Type: 
  Country: None (occurrence: None)
  Receive Date: 20100618
  Receipt Date: 20100615
  Transmission Date: 20101027
  Serious: Yes (Death, Hospitalization)
  Sender: FDA-Public Use
  Company Number: PHHO2010KR08418

PATIENT
  Sex: Male
  Weight: 72 kg

DRUGS (14)
  1. AFINITOR [Suspect]
     Indication: SMALL CELL LUNG CANCER STAGE UNSPECIFIED
     Dosage: 10MG
     Route: 048
     Dates: start: 20100520, end: 20100531
  2. PACLITAXEL [Suspect]
     Indication: SMALL CELL LUNG CANCER STAGE UNSPECIFIED
     Dosage: 320 MG Q3WKS
     Route: 042
     Dates: start: 20100520, end: 20100520
  3. CHOLINE ALFOSCERATE [Concomitant]
     Dosage: UNK
  4. LANSOPRAZOLE [Concomitant]
     Dosage: UNK
  5. LAMIVUDINE [Concomitant]
     Dosage: UNK
  6. OXYCODONE [Concomitant]
     Indication: MYALGIA
     Dosage: UNK
  7. MAGNESIUM OXIDE [Concomitant]
     Dosage: UNK
  8. RANITIDINE [Concomitant]
     Dosage: UNK
  9. SOLU-CORTEF [Concomitant]
     Dosage: UNK
  10. PALONOSETRON [Concomitant]
     Dosage: UNK
  11. CHLORPHENIRAMINE MALEATE [Concomitant]
     Dosage: UNK
  12. GABAPENTIN [Concomitant]
     Dosage: UNK
  13. AMITRIPTYLINE [Concomitant]
     Dosage: UNK
  14. CLOPIDOGREL [Concomitant]
     Indication: CEREBROVASCULAR ACCIDENT
     Dosage: UNK

REACTIONS (18)
  - BLOOD PRESSURE DECREASED [None]
  - CARDIAC ARREST [None]
  - CARDIAC DISORDER [None]
  - CARDIOPULMONARY BYPASS [None]
  - DYSPNOEA [None]
  - ENDOTRACHEAL INTUBATION [None]
  - HYPOXIC ENCEPHALOPATHY [None]
  - IRRITABILITY [None]
  - LUNG CONSOLIDATION [None]
  - METABOLIC ACIDOSIS [None]
  - OXYGEN SATURATION DECREASED [None]
  - PERCUTANEOUS CORONARY INTERVENTION [None]
  - PNEUMONIA [None]
  - PULMONARY OEDEMA [None]
  - PULSE PRESSURE DECREASED [None]
  - RALES [None]
  - TACHYCARDIA [None]
  - THROMBOCYTOPENIA [None]
